FAERS Safety Report 5295766-5 (Version None)
Quarter: 2007Q2

REPORT INFORMATION
  Report Type: 
  Country: None (occurrence: None)
  Receive Date: 20070413
  Receipt Date: 20070402
  Transmission Date: 20071010
  Serious: Yes (Hospitalization)
  Sender: FDA-Public Use
  Company Number: FR-SANOFI-SYNTHELABO-A02200700959

PATIENT
  Age: 59 Year
  Sex: Male

DRUGS (6)
  1. STILNOX [Suspect]
     Indication: DRUG TOXICITY
     Route: 048
     Dates: start: 20070227, end: 20070227
  2. BUFLOMEDIL [Suspect]
     Indication: DRUG TOXICITY
     Route: 048
     Dates: start: 20070227, end: 20070227
  3. BROMAZEPAM [Suspect]
     Indication: DRUG TOXICITY
     Route: 048
     Dates: start: 20070227, end: 20070227
  4. LYSANXIA [Suspect]
     Indication: DRUG TOXICITY
     Route: 048
     Dates: start: 20070227, end: 20070227
  5. ALCOHOL [Concomitant]
     Indication: DRUG TOXICITY
     Dosage: NA
     Route: 048
     Dates: start: 20070227, end: 20070227
  6. PLAVIX [Suspect]
     Indication: DRUG TOXICITY
     Route: 048
     Dates: start: 20070227, end: 20070227

REACTIONS (6)
  - ANAEMIA [None]
  - DEPRESSED LEVEL OF CONSCIOUSNESS [None]
  - HAEMATEMESIS [None]
  - HYPOTENSION [None]
  - INTENTIONAL OVERDOSE [None]
  - THROMBOCYTOPENIA [None]
